FAERS Safety Report 4629908-9 (Version None)
Quarter: 2005Q2

REPORT INFORMATION
  Report Type: 
  Country: None (occurrence: None)
  Receive Date: 20050408
  Receipt Date: 20050318
  Transmission Date: 20051028
  Serious: Yes (Hospitalization)
  Sender: FDA-Public Use
  Company Number: IS-MERCK-0503DNK00027

PATIENT
  Sex: Male

DRUGS (2)
  1. VIOXX [Suspect]
     Indication: OSTEOARTHRITIS
     Route: 048
     Dates: start: 20020101, end: 20041001
  2. TESTOSTERONE PROPIONATE [Concomitant]
     Indication: ERECTILE DYSFUNCTION
     Route: 051
     Dates: start: 19980101, end: 20041201

REACTIONS (1)
  - MYOCARDIAL INFARCTION [None]
